FAERS Safety Report 5239045-0 (Version None)
Quarter: 2007Q1

REPORT INFORMATION
  Report Type: 
  Country: None (occurrence: None)
  Receive Date: 20061208
  Receipt Date: 20050630
  Transmission Date: 20070707
  Serious: Yes (Other)
  Sender: FDA-Public Use
  Company Number: 2005UW09887

PATIENT
  Age: 56 Year
  Weight: 106.59 kg

DRUGS (6)
  1. CRESTOR [Suspect]
     Indication: HYPERCHOLESTEROLAEMIA
     Dosage: 10 MG PO
     Route: 048
     Dates: start: 20050101
  2. TOPROL-XL [Concomitant]
  3. FOLIC ACID [Concomitant]
  4. GLUCOTROL XL [Concomitant]
  5. AVANDIA [Concomitant]
  6. COREG [Concomitant]

REACTIONS (4)
  - ABDOMINAL PAIN [None]
  - ARTHRALGIA [None]
  - FAECES DISCOLOURED [None]
  - MYALGIA [None]
